FAERS Safety Report 20002634 (Version 1)
Quarter: 2021Q4

REPORT INFORMATION
  Report Type: Report from Study
  Country: US (occurrence: US)
  Receive Date: 20211027
  Receipt Date: 20211027
  Transmission Date: 20220303
  Serious: No
  Sender: FDA-Public Use
  Company Number: US-NOVARTISTESTPH-NVSC2021US244720

PATIENT

DRUGS (1)
  1. ENTRESTO [Suspect]
     Active Substance: SACUBITRIL\VALSARTAN
     Indication: Cardiac failure congestive
     Dosage: 1.5 DF, OTHER (1 AND 1/2 TABLET BID)
     Route: 048

REACTIONS (2)
  - Prescribed underdose [Unknown]
  - Wrong technique in product usage process [Unknown]
